FAERS Safety Report 9927769 (Version 1)
Quarter: 2014Q1

REPORT INFORMATION
  Report Type: Spontaneous
  Country: RU (occurrence: RU)
  Receive Date: 20140227
  Receipt Date: 20140227
  Transmission Date: 20141002
  Serious: Yes (Other)
  Sender: FDA-Public Use
  Company Number: RU-AMGEN-RUSSP2014013945

PATIENT
  Age: 36 Year
  Sex: 0
  Weight: 120 kg

DRUGS (1)
  1. NPLATE [Suspect]
     Indication: IMMUNE THROMBOCYTOPENIC PURPURA
     Dosage: 7 MG/KG, UNK
     Route: 065

REACTIONS (1)
  - Therapeutic response decreased [Unknown]
